FAERS Safety Report 8005474-5 (Version None)
Quarter: 2011Q4

REPORT INFORMATION
  Report Type: 
  Country: None (occurrence: None)
  Receive Date: 20111223
  Receipt Date: 20111220
  Transmission Date: 20120403
  Serious: Yes (Hospitalization, Other)
  Sender: FDA-Public Use
  Company Number: US-JNJFOC-20111210126

PATIENT
  Age: 52 Year
  Sex: Female
  Weight: 67.99 kg

DRUGS (5)
  1. CYCLOPHOSPHAMIDE [Suspect]
     Indication: BREAST CANCER
     Route: 042
     Dates: start: 20110310, end: 20110621
  2. PACLITAXEL [Suspect]
     Indication: BREAST CANCER
     Dosage: EVERY 12 DAYS
     Route: 042
     Dates: end: 20110421
  3. PEGFILGRASTIM [Suspect]
     Indication: BREAST CANCER
     Route: 058
     Dates: end: 20110422
  4. DOXORUBICIN HCL [Suspect]
     Indication: BREAST CANCER
     Route: 042
     Dates: start: 20110310, end: 20110421
  5. BEVACIZUMAB [Suspect]
     Indication: BREAST CANCER
     Dosage: (OVER 30 - 90 MINS ON DAY 1) EVERY 14 DAYS
     Route: 042
     Dates: start: 20110310, end: 20110621

REACTIONS (4)
  - CARDIOMYOPATHY [None]
  - HAEMORRHAGE [None]
  - OROPHARYNGEAL PAIN [None]
  - PYREXIA [None]
